FAERS Safety Report 10525422 (Version 1)
Quarter: 2014Q4

REPORT INFORMATION
  Report Type: Spontaneous
  Country: IT (occurrence: IT)
  Receive Date: 20141017
  Receipt Date: 20141017
  Transmission Date: 20150528
  Serious: Yes (Other)
  Sender: FDA-Public Use
  Company Number: IT-WATSON-2014-22120

PATIENT
  Age: 42 Year
  Sex: Male

DRUGS (1)
  1. NITROFURANTOIN (UNKNOWN) [Suspect]
     Active Substance: NITROFURANTOIN
     Indication: URINARY TRACT INFECTION
     Dosage: 50 MG, UNK
     Route: 048

REACTIONS (1)
  - Cluster headache [Recovered/Resolved]
